FAERS Safety Report 13262190 (Version 1)
Quarter: 2017Q1

REPORT INFORMATION
  Report Type: Report from Study
  Country: CO (occurrence: CO)
  Receive Date: 20170222
  Receipt Date: 20170222
  Transmission Date: 20170428
  Serious: Yes (Other)
  Sender: FDA-Public Use
  Company Number: CO-ALEXION PHARMACEUTICALS INC.-A201701609

PATIENT
  Age: 5 Month
  Sex: Female
  Weight: 6.2 kg

DRUGS (2)
  1. SOLIRIS [Suspect]
     Active Substance: ECULIZUMAB
     Indication: HAEMOLYTIC URAEMIC SYNDROME
     Dosage: 300 MG, QW
     Route: 042
     Dates: start: 20170127, end: 20170127
  2. SOLIRIS [Suspect]
     Active Substance: ECULIZUMAB
     Dosage: 300 MG, Q 21 DAYS
     Route: 042
     Dates: start: 20170203, end: 20170203

REACTIONS (3)
  - Bacterial infection [Not Recovered/Not Resolved]
  - Cerebral haematoma [Unknown]
  - Partial seizures [Unknown]

NARRATIVE: CASE EVENT DATE: 20170203
